FAERS Safety Report 14425994 (Version 1)
Quarter: 2018Q1

REPORT INFORMATION
  Report Type: Spontaneous
  Country: US (occurrence: US)
  Receive Date: 20180123
  Receipt Date: 20180123
  Transmission Date: 20180509
  Serious: No
  Sender: FDA-Public Use
  Company Number: US-SIGMAPHARM LABORATORIES, LLC-2017SIG00016

PATIENT
  Sex: Female

DRUGS (5)
  1. VITAMIN B12 [Suspect]
     Active Substance: CYANOCOBALAMIN
     Dosage: 3 GTT, UNK
  2. METHYLFOLATE [Suspect]
     Active Substance: LEVOMEFOLATE CALCIUM
     Dosage: 800 MCG, UNK
     Dates: start: 201702
  3. LIOTHYRONINE SODIUM. [Suspect]
     Active Substance: LIOTHYRONINE SODIUM
     Dosage: UNK
     Dates: start: 20170215, end: 20170217
  4. METHYLFOLATE [Suspect]
     Active Substance: LEVOMEFOLATE CALCIUM
     Dosage: 400 MCG, UNK
  5. VITAMIN B12 [Suspect]
     Active Substance: CYANOCOBALAMIN
     Dosage: 0.5 DROPPER FULL UNK, UNK

REACTIONS (4)
  - Drug hypersensitivity [Unknown]
  - Pruritus [Unknown]
  - Headache [Unknown]
  - Muscle spasms [Unknown]

NARRATIVE: CASE EVENT DATE: 201702
